FAERS Safety Report 5123315-0 (Version None)
Quarter: 2006Q4

REPORT INFORMATION
  Report Type: 
  Country: None (occurrence: None)
  Receive Date: 20061009
  Receipt Date: 20060927
  Transmission Date: 20070319
  Serious: Yes (Other)
  Sender: FDA-Public Use
  Company Number: DE-SANOFI-SYNTHELABO-A04200600989

PATIENT
  Sex: Female

DRUGS (1)
  1. QUENSYL [Suspect]
     Indication: SYSTEMIC LUPUS ERYTHEMATOSUS RASH
     Dosage: UNK
     Route: 048

REACTIONS (2)
  - ARRHYTHMIA [None]
  - ATRIOVENTRICULAR BLOCK [None]
